FAERS Safety Report 7278308-4 (Version None)
Quarter: 2011Q1

REPORT INFORMATION
  Report Type: 
  Country: None (occurrence: None)
  Receive Date: 20110202
  Receipt Date: 20110202
  Transmission Date: 20110831
  Serious: Yes (Hospitalization)
  Sender: FDA-Public Use
  Company Number: None

PATIENT
  Age: 51 Year
  Sex: Female
  Weight: 66 kg

DRUGS (13)
  1. OMEPRAZOLE [Concomitant]
  2. RIFAMPIN [Suspect]
  3. FEXOFENADINE [Concomitant]
  4. LACTOBACILLUS [Concomitant]
  5. LEVOTHYROXINE [Concomitant]
  6. AZITHROMYCIN [Suspect]
  7. GLUCOSAMINE/CHRONDROITIN [Concomitant]
  8. MOMETASONE FUROATE [Concomitant]
  9. ESTRADIOL [Concomitant]
  10. MULTIIVITAMIN [Concomitant]
  11. ROPINIROLE [Concomitant]
  12. ETHAMBUTOL HYDROCHLORIDE [Suspect]
     Indication: MYCOBACTERIUM AVIUM COMPLEX INFECTION
     Dosage: 1600 MG MWF PO
     Route: 048
  13. FLUTICASONE/SALMETEROL [Concomitant]

REACTIONS (2)
  - THROMBOCYTOPENIA [None]
  - VIRAL INFECTION [None]
